FAERS Safety Report 10151919 (Version 1)
Quarter: 2014Q2

REPORT INFORMATION
  Report Type: Spontaneous
  Country: US (occurrence: None)
  Receive Date: 20140501
  Receipt Date: 20140501
  Transmission Date: 20141212
  Serious: Yes (Other)
  Sender: FDA-Public Use
  Company Number: 9039997-2014-00024

PATIENT
  Age: 44 Year
  Sex: Female

DRUGS (2)
  1. LEVULAN KERASTICK TOPICAL SOLUTION 20% [Suspect]
     Indication: ACTINIC KERATOSIS
     Dosage: 20% SINGLE TOPICAL
     Route: 061
     Dates: start: 20140411
  2. WELLBUTRIN [Suspect]
     Indication: DEPRESSION
     Dates: end: 20140414

REACTIONS (4)
  - Application site vesicles [None]
  - Application site pruritus [None]
  - Skin tightness [None]
  - Convulsion [None]
